FAERS Safety Report 7116788-5 (Version None)
Quarter: 2010Q4

REPORT INFORMATION
  Report Type: 
  Country: None (occurrence: None)
  Receive Date: 20101115
  Receipt Date: 20101104
  Transmission Date: 20110411
  Serious: Yes (Hospitalization)
  Sender: FDA-Public Use
  Company Number: 2010US004581

PATIENT
  Age: 57 Year
  Sex: Male
  Weight: 119 kg

DRUGS (13)
  1. PROGRAF [Suspect]
     Indication: LIVER TRANSPLANT
     Dosage: 5 MG, UID/QD, ORAL
     Route: 048
     Dates: start: 19980211
  2. NITROGLYCERIN [Concomitant]
  3. LANTUS [Concomitant]
  4. COLCHICINE [Concomitant]
  5. TRAZODONE [Concomitant]
  6. WARFARIN SODIUM [Concomitant]
  7. DIGOXIN [Concomitant]
  8. PLAVIX [Concomitant]
  9. METOPROLOL [Concomitant]
  10. VICODIN [Concomitant]
  11. LIPITOR [Concomitant]
  12. TRILIPIX [Concomitant]
  13. FUROSEMIDE [Concomitant]

REACTIONS (5)
  - ATRIAL FIBRILLATION [None]
  - CARDIAC PACEMAKER INSERTION [None]
  - INFECTION [None]
  - MYOCARDIAL INFARCTION [None]
  - PROCEDURAL COMPLICATION [None]
